FAERS Safety Report 6865916-5 (Version None)
Quarter: 2010Q3

REPORT INFORMATION
  Report Type: 
  Country: None (occurrence: None)
  Receive Date: 20100719
  Receipt Date: 20100709
  Transmission Date: 20110219
  Serious: Yes (Other)
  Sender: FDA-Public Use
  Company Number: RB-08244-2010

PATIENT
  Age: 68 Year
  Sex: Female

DRUGS (1)
  1. SUBOXONE [Suspect]
     Indication: PAIN MANAGEMENT
     Dosage: (8 MG QD SUBLINGUAL)
     Route: 060
     Dates: start: 20091201

REACTIONS (5)
  - ARTHRALGIA [None]
  - BACK PAIN [None]
  - CONDITION AGGRAVATED [None]
  - SQUAMOUS CELL CARCINOMA [None]
  - VITAMIN D DECREASED [None]
